FAERS Safety Report 8028835-7 (Version None)
Quarter: 2012Q1

REPORT INFORMATION
  Report Type: 
  Country: None (occurrence: None)
  Receive Date: 20120106
  Receipt Date: 20111223
  Transmission Date: 20120608
  Serious: Yes (Other)
  Sender: FDA-Public Use
  Company Number: ES-CELGENEUS-144-50794-11123276

PATIENT
  Age: 46 Year
  Sex: Female

DRUGS (1)
  1. VIDAZA [Suspect]
     Route: 058
     Dates: start: 20110307, end: 20110715

REACTIONS (3)
  - FEBRILE NEUTROPENIA [None]
  - DYSPNOEA [None]
  - TOXICITY TO VARIOUS AGENTS [None]
